FAERS Safety Report 10413980 (Version 1)
Quarter: 2014Q3

REPORT INFORMATION
  Report Type: Spontaneous
  Country: TR (occurrence: None)
  Receive Date: 20140825
  Receipt Date: 20140825
  Transmission Date: 20150326
  Serious: Yes (Hospitalization)
  Sender: FDA-Public Use
  Company Number: 2014JA00026

PATIENT
  Age: 10 Month
  Sex: Female
  Weight: 10 kg

DRUGS (5)
  1. TOPIRAMATE. [Concomitant]
     Active Substance: TOPIRAMATE
  2. VIGABATRIN [Concomitant]
     Active Substance: VIGABATRIN
  3. LEVETIRACETAM. [Suspect]
     Active Substance: LEVETIRACETAM
     Indication: EARLY INFANTILE EPILEPTIC ENCEPHALOPATHY WITH BURST-SUPPRESSION
  4. VITAMIN B6 [Concomitant]
     Active Substance: PYRIDOXINE HYDROCHLORIDE
  5. CALCIUM FOLINATE [Concomitant]
     Active Substance: LEUCOVORIN CALCIUM

REACTIONS (6)
  - Apathy [None]
  - Hyporesponsive to stimuli [None]
  - Body temperature decreased [None]
  - Accidental overdose [None]
  - Hypotonia [None]
  - Somnolence [None]

NARRATIVE: CASE EVENT DATE: 20130320
